FAERS Safety Report 21896308 (Version 1)
Quarter: 2023Q1

REPORT INFORMATION
  Report Type: Spontaneous
  Country: DE (occurrence: DE)
  Receive Date: 20230123
  Receipt Date: 20230123
  Transmission Date: 20230417
  Serious: No
  Sender: FDA-Public Use
  Company Number: DE-ALKEM LABORATORIES LIMITED-DE-ALKEM-2022-13932

PATIENT
  Age: 52 Year
  Sex: Female

DRUGS (14)
  1. FINGOLIMOD [Suspect]
     Active Substance: FINGOLIMOD
     Indication: Relapsing-remitting multiple sclerosis
     Dosage: UNK
     Route: 048
     Dates: start: 20191219
  2. FINGOLIMOD [Suspect]
     Active Substance: FINGOLIMOD
     Dosage: UNK
     Route: 048
     Dates: start: 20201130
  3. COMIRNATY [Concomitant]
     Active Substance: TOZINAMERAN
     Indication: COVID-19 prophylaxis
     Dosage: 10 MICROGRAM, 1 TOTAL
     Route: 030
     Dates: start: 20210504, end: 20210504
  4. COMIRNATY [Concomitant]
     Active Substance: TOZINAMERAN
     Dosage: 10 MICROGRAM, 1 TOTAL
     Route: 030
     Dates: start: 20210615, end: 20210615
  5. ESCITALOPRAM [Concomitant]
     Active Substance: ESCITALOPRAM OXALATE
     Indication: Depression
     Dosage: 20 MILLIGRAM, QD (EVERY 1 DAY)
     Route: 048
     Dates: start: 20190808, end: 20210614
  6. ESCITALOPRAM [Concomitant]
     Active Substance: ESCITALOPRAM OXALATE
     Dosage: 20 MILLIGRAM, QD (EVERY 1 DAY)
     Route: 048
     Dates: start: 20210615
  7. PREGABALIN [Concomitant]
     Active Substance: PREGABALIN
     Indication: Restless legs syndrome
     Dosage: 150 MILLIGRAM, QD (EVERY 1 DAY)
     Route: 048
     Dates: start: 20181122
  8. Spasmex [Concomitant]
     Indication: Bladder dysfunction
     Dosage: 5 MILLIGRAM, EVERY 3 DAYS
     Route: 048
     Dates: start: 20210207
  9. SPIKEVAX [Concomitant]
     Active Substance: ELASOMERAN
     Indication: COVID-19 prophylaxis
     Dosage: 0.25 MILLILITER, 1 TOTAL
     Route: 030
     Dates: start: 20211211, end: 20211211
  10. TECFIDERA [Concomitant]
     Active Substance: DIMETHYL FUMARATE
     Indication: Multiple sclerosis
     Dosage: 120 MILLIGRAM, EVERY 2 DAY
     Route: 048
     Dates: start: 20220209, end: 20220216
  11. TECFIDERA [Concomitant]
     Active Substance: DIMETHYL FUMARATE
     Dosage: 240 MILLIGRAM, EVERY 2 DAY
     Route: 048
     Dates: start: 20220217, end: 202205
  12. TROSPIUM CHLORIDE [Concomitant]
     Active Substance: TROSPIUM CHLORIDE
     Indication: Bladder dysfunction
     Dosage: 5 MILLIGRAM, EVERY 3 DAY
     Route: 048
     Dates: start: 20190808
  13. TYSABRI [Concomitant]
     Active Substance: NATALIZUMAB
     Indication: Multiple sclerosis
     Dosage: 300 MILLIGRAM, EVERY 1 MONTH
     Route: 042
     Dates: start: 20220516
  14. ZEPOSIA [Concomitant]
     Active Substance: OZANIMOD HYDROCHLORIDE
     Indication: Multiple sclerosis
     Dosage: 0.92 MILLIGRAM, EVERY 1 DAY
     Route: 048
     Dates: start: 20210419, end: 20220128

REACTIONS (1)
  - Lymphopenia [Recovered/Resolved]

NARRATIVE: CASE EVENT DATE: 20201126
